FAERS Safety Report 16900592 (Version 1)
Quarter: 2019Q4

REPORT INFORMATION
  Report Type: Spontaneous
  Country: GB (occurrence: GB)
  Receive Date: 20191009
  Receipt Date: 20191009
  Transmission Date: 20200122
  Serious: Yes (Hospitalization, Disabling)
  Sender: FDA-Public Use
  Company Number: GB-BAUSCH-BL-2019-057120

PATIENT
  Age: 29 Year
  Sex: Male
  Weight: 53 kg

DRUGS (2)
  1. PREDNISOLONE. [Suspect]
     Active Substance: PREDNISOLONE
     Dosage: THEN REDUCE BY 5 MG PER WEEK UNTIL STOP-DOSE REDUCED TO 5 MG DAILY ON 22/NOV
     Route: 048
     Dates: start: 201811, end: 20181122
  2. PREDNISOLONE. [Suspect]
     Active Substance: PREDNISOLONE
     Indication: CROHN^S DISEASE
     Dosage: 40 MG FOR 2 WEEKS
     Route: 048
     Dates: start: 20181025, end: 201811

REACTIONS (8)
  - Aphasia [Recovering/Resolving]
  - Hallucination, auditory [Recovering/Resolving]
  - Catatonia [Recovered/Resolved with Sequelae]
  - Psychotic disorder [Recovered/Resolved with Sequelae]
  - Schizophrenia [Recovering/Resolving]
  - Akinesia [Recovering/Resolving]
  - Anxiety [Recovering/Resolving]
  - Paranoia [Recovered/Resolved with Sequelae]

NARRATIVE: CASE EVENT DATE: 20181122
